FAERS Safety Report 7927560-8 (Version None)
Quarter: 2011Q4

REPORT INFORMATION
  Report Type: 
  Country: None (occurrence: None)
  Receive Date: 20111118
  Receipt Date: 20111115
  Transmission Date: 20120403
  Serious: No
  Sender: FDA-Public Use
  Company Number: US-PFIZER INC-2011279974

PATIENT
  Sex: Male
  Weight: 52.154 kg

DRUGS (1)
  1. PROTONIX [Suspect]
     Indication: ULCER
     Dosage: 40 MG, 1X/DAY
     Route: 048
     Dates: start: 20111025, end: 20111028

REACTIONS (2)
  - COUGH [None]
  - HEART RATE IRREGULAR [None]
